FAERS Safety Report 14898627 (Version 1)
Quarter: 2018Q2

REPORT INFORMATION
  Report Type: Spontaneous
  Country: JP (occurrence: JP)
  Receive Date: 20180515
  Receipt Date: 20180515
  Transmission Date: 20180711
  Serious: Yes (Hospitalization)
  Sender: FDA-Public Use
  Company Number: JP-009507513-1805JPN006071

PATIENT
  Age: 88 Year
  Sex: Male

DRUGS (1)
  1. ALENDRONATE SODIUM. [Suspect]
     Active Substance: ALENDRONATE SODIUM
     Indication: OSTEOPOROSIS
     Dosage: 35 MILLIGRAM PER WEEK
     Route: 048
     Dates: start: 201803

REACTIONS (2)
  - Faeces discoloured [Unknown]
  - Gastric cancer [Unknown]
